FAERS Safety Report 8026386-7 (Version None)
Quarter: 2012Q1

REPORT INFORMATION
  Report Type: 
  Country: None (occurrence: None)
  Receive Date: 20120105
  Receipt Date: 20111227
  Transmission Date: 20120608
  Serious: Yes (Disabling)
  Sender: FDA-Public Use
  Company Number: GB-ABBOTT-11P-167-0887251-00

PATIENT
  Age: 48 Year
  Sex: Male

DRUGS (5)
  1. QUETIAPINE [Suspect]
     Indication: MANIA
     Dosage: DAILY
     Route: 048
     Dates: start: 20110101, end: 20110101
  2. QUETIAPINE [Suspect]
     Dosage: DAILY
     Route: 048
     Dates: start: 20110101
  3. QUETIAPINE [Suspect]
     Dosage: DAILY
     Route: 048
     Dates: start: 20110101, end: 20110101
  4. DEPAKOTE [Suspect]
     Indication: MANIA
     Route: 048
     Dates: start: 20110701
  5. QUETIAPINE [Suspect]
     Indication: BIPOLAR DISORDER
     Dosage: DAILY
     Route: 048
     Dates: start: 20110701

REACTIONS (2)
  - ERECTILE DYSFUNCTION [None]
  - MANIA [None]
